FAERS Safety Report 10464025 (Version 1)
Quarter: 2014Q3

REPORT INFORMATION
  Report Type: Spontaneous
  Country: DE (occurrence: DE)
  Receive Date: 20140919
  Receipt Date: 20140919
  Transmission Date: 20150326
  Serious: Yes (Congenital Anomaly)
  Sender: FDA-Public Use
  Company Number: DE-RANBAXY-2014RR-85703

PATIENT
  Age: 1 Day
  Sex: Male

DRUGS (9)
  1. HYDROCHLOROTHIAZIDE. [Suspect]
     Active Substance: HYDROCHLOROTHIAZIDE
     Indication: HYPERTENSION
     Dosage: 25 MG, BID, DURING GESTATIONAL WEEKS 0-14
     Route: 064
     Dates: start: 20121206, end: 20130314
  2. NOVORAPID [Concomitant]
     Active Substance: INSULIN ASPART
     Indication: TYPE 1 DIABETES MELLITUS
     Dosage: DURING GESTATIONAL WEEKS 0-27.6
     Route: 064
     Dates: start: 20121206, end: 20130619
  3. METOPROLOL [Suspect]
     Active Substance: METOPROLOL
     Indication: HYPERTENSION
     Dosage: 150 MG, DAILY, DURING GESTATIONAL WEEKS 0-25.2
     Route: 064
     Dates: start: 20121206, end: 20130601
  4. DIAZEPAM. [Concomitant]
     Active Substance: DIAZEPAM
     Indication: ACUTE STRESS DISORDER
     Dosage: AFTER THE DEATH OF HER MOTHER, IF REQUIRED, UNKNOWN TRIMESTER
     Route: 064
  5. VALSARTAN. [Suspect]
     Active Substance: VALSARTAN
     Indication: HYPERTENSION
     Dosage: 160 MG, QD, DURING GESTATIONAL WEEKS 0-13.4
     Route: 064
     Dates: start: 20121206, end: 20130311
  6. THYROXIN [Concomitant]
     Active Substance: LEVOTHYROXINE
     Indication: HYPOTHYROIDISM
     Dosage: 75 UG QD, DURING GESTATIONAL WEEKS 0-27.6
     Route: 064
     Dates: start: 20121206, end: 20130619
  7. NEPRESOL [Concomitant]
     Active Substance: DIHYDRALAZINE SULFATE
     Indication: HYPERTENSION
     Dosage: TRIMESTER 2ND +3RD
     Route: 064
  8. METHYLDOPA. [Concomitant]
     Active Substance: METHYLDOPA
     Indication: HYPERTENSION
     Dosage: 25 MG, TID, DURING GESTATIONAL WEEKS 13.5-27.6
     Route: 064
     Dates: start: 20130312, end: 20130619
  9. FOLIO [Concomitant]
     Active Substance: FOLIC ACID
     Indication: PROPHYLAXIS OF NEURAL TUBE DEFECT
     Dosage: 0.4 MG, QD, DURING GESTATIONAL WEEKS 0-14
     Route: 064
     Dates: start: 20121206, end: 20130314

REACTIONS (6)
  - Patent ductus arteriosus [Recovered/Resolved with Sequelae]
  - Atrial septal defect [Not Recovered/Not Resolved]
  - Hypospadias [Not Recovered/Not Resolved]
  - Hypoacusis [Not Recovered/Not Resolved]
  - Ventricular septal defect [Not Recovered/Not Resolved]
  - Pulmonary valve stenosis [Not Recovered/Not Resolved]

NARRATIVE: CASE EVENT DATE: 20130619
